FAERS Safety Report 24568960 (Version 1)
Quarter: 2024Q4

REPORT INFORMATION
  Report Type: Spontaneous
  Country: EG (occurrence: EG)
  Receive Date: 20241031
  Receipt Date: 20241031
  Transmission Date: 20250115
  Serious: Yes (Other)
  Sender: AMGEN
  Company Number: EG-AMGEN-EGYSP2024213227

PATIENT

DRUGS (2)
  1. FILGRASTIM [Suspect]
     Active Substance: FILGRASTIM
     Indication: Stem cell transplant
     Dosage: UNK, ADMINISTERED AT DAY + 6 UNTIL ENGRAFTMENT
     Route: 065
  2. CYCLOSPORINE [Concomitant]
     Active Substance: CYCLOSPORINE
     Indication: Prophylaxis
     Dosage: 1.5 MILLIGRAM/KILOGRAM, Q12H
     Route: 040

REACTIONS (3)
  - Nephropathy toxic [Unknown]
  - Neurotoxicity [Unknown]
  - Graft versus host disease [Unknown]
